FAERS Safety Report 12776899 (Version 1)
Quarter: 2016Q3

REPORT INFORMATION
  Report Type: Report from Study
  Country: US (occurrence: US)
  Receive Date: 20160923
  Receipt Date: 20160923
  Transmission Date: 20161109
  Serious: Yes (Other)
  Sender: FDA-Public Use
  Company Number: US-ABBVIE-16K-163-1734723-00

PATIENT
  Sex: Female

DRUGS (1)
  1. HUMIRA [Suspect]
     Active Substance: ADALIMUMAB
     Indication: PRODUCT USED FOR UNKNOWN INDICATION
     Route: 058
     Dates: start: 20151124

REACTIONS (6)
  - Cardiac pacemaker insertion [Not Recovered/Not Resolved]
  - Heart valve incompetence [Not Recovered/Not Resolved]
  - Pruritus [Recovering/Resolving]
  - Cardiac disorder [Recovering/Resolving]
  - Abdominal pain upper [Recovering/Resolving]
  - Cardiac operation [Not Recovered/Not Resolved]
